FAERS Safety Report 13830719 (Version 2)
Quarter: 2017Q4

REPORT INFORMATION
  Report Type: Spontaneous
  Country: JP (occurrence: JP)
  Receive Date: 20170803
  Receipt Date: 20171019
  Transmission Date: 20180320
  Serious: Yes (Other)
  Sender: FDA-Public Use
  Company Number: JP-ABBVIE-17P-087-2060126-00

PATIENT
  Sex: Male

DRUGS (1)
  1. LUPRON DEPOT [Suspect]
     Active Substance: LEUPROLIDE ACETATE
     Indication: PROSTATE CANCER
     Dosage: 22.5 MG, Q6MONTHS
     Route: 058

REACTIONS (9)
  - Renal cell carcinoma [Unknown]
  - Hepatocellular carcinoma [Unknown]
  - Gastrointestinal carcinoma [Unknown]
  - Neoplasm malignant [Unknown]
  - Transitional cell carcinoma [Unknown]
  - Head and neck cancer [Unknown]
  - Lip and/or oral cavity cancer [Unknown]
  - Pancreatic carcinoma [Unknown]
  - Lung neoplasm malignant [Unknown]
